FAERS Safety Report 7704457-X (Version None)
Quarter: 2011Q3

REPORT INFORMATION
  Report Type: 
  Country: None (occurrence: None)
  Receive Date: 20110823
  Receipt Date: 20110817
  Transmission Date: 20111222
  Serious: Yes (Other)
  Sender: FDA-Public Use
  Company Number: NZ-B.I. PHARMACEUTICALS,INC./RIDGEFIELD-2011-AU-00904AU

PATIENT
  Age: 83 Year
  Sex: Female

DRUGS (2)
  1. PANTOPRAZOLE [Concomitant]
  2. PRADAXA [Suspect]

REACTIONS (2)
  - CARDIAC FIBRILLATION [None]
  - ABDOMINAL DISCOMFORT [None]
